FAERS Safety Report 5005330-0 (Version None)
Quarter: 2006Q2

REPORT INFORMATION
  Report Type: 
  Country: None (occurrence: None)
  Receive Date: 20060515
  Receipt Date: 20060502
  Transmission Date: 20061013
  Serious: Yes (Other)
  Sender: FDA-Public Use
  Company Number: 2006059497

PATIENT
  Age: 45 Year
  Sex: Female
  Weight: 59.8748 kg

DRUGS (4)
  1. XANAX [Suspect]
     Indication: ILL-DEFINED DISORDER
  2. LUNESTA [Suspect]
     Indication: INSOMNIA
     Dosage: 3 MG (1 IN 1 D) ORAL
     Route: 048
     Dates: start: 20060320, end: 20060323
  3. FENTANYL [Concomitant]
  4. LORTAB [Concomitant]

REACTIONS (11)
  - CONDITION AGGRAVATED [None]
  - DIARRHOEA [None]
  - DIZZINESS [None]
  - DRUG INEFFECTIVE [None]
  - FALL [None]
  - IRRITABILITY [None]
  - MIGRAINE [None]
  - MOOD SWINGS [None]
  - MUSCLE SPASMS [None]
  - NAUSEA [None]
  - VOMITING [None]
